FAERS Safety Report 22055092 (Version 2)
Quarter: 2023Q1

REPORT INFORMATION
  Report Type: Spontaneous
  Country: US (occurrence: US)
  Receive Date: 20230302
  Receipt Date: 20230323
  Transmission Date: 20230417
  Serious: No
  Sender: FDA-Public Use
  Company Number: US-GLAXOSMITHKLINE-US2023031758

PATIENT
  Age: 55 Year
  Sex: Female

DRUGS (1)
  1. ZEJULA [Suspect]
     Active Substance: NIRAPARIB
     Indication: Ovarian cancer
     Dosage: 200 MG, QD
     Dates: start: 20230216

REACTIONS (5)
  - Headache [Not Recovered/Not Resolved]
  - Sinus congestion [Unknown]
  - Feeling abnormal [Unknown]
  - Faeces hard [Unknown]
  - Swelling face [Unknown]

NARRATIVE: CASE EVENT DATE: 20230201
